FAERS Safety Report 11107482 (Version 2)
Quarter: 2015Q3

REPORT INFORMATION
  Report Type: Report from Study
  Country: JP (occurrence: JP)
  Receive Date: 20150512
  Receipt Date: 20150731
  Transmission Date: 20151125
  Serious: Yes (Death)
  Sender: FDA-Public Use
  Company Number: JP-INCYTE CORPORATION-2015IN001947

PATIENT
  Age: 58 Year
  Sex: Female

DRUGS (1)
  1. JAKAFI [Suspect]
     Active Substance: RUXOLITINIB
     Indication: MYELOFIBROSIS
     Dosage: 15 MG, BID
     Route: 048
     Dates: start: 20141210

REACTIONS (5)
  - C-reactive protein decreased [Unknown]
  - Malaise [Recovering/Resolving]
  - White blood cell count decreased [Unknown]
  - Pyrexia [Recovering/Resolving]
  - Myelofibrosis [Fatal]
